FAERS Safety Report 16731325 (Version 1)
Quarter: 2019Q3

REPORT INFORMATION
  Report Type: Report from Study
  Country: US (occurrence: US)
  Receive Date: 20190822
  Receipt Date: 20190822
  Transmission Date: 20191005
  Serious: Yes (Other)
  Sender: FDA-Public Use
  Company Number: US-JNJFOC-20190733147

PATIENT
  Sex: Female

DRUGS (1)
  1. IMBRUVICA [Suspect]
     Active Substance: IBRUTINIB
     Indication: CHRONIC LYMPHOCYTIC LEUKAEMIA
     Dosage: 280 MG, QD
     Route: 048
     Dates: start: 20180404

REACTIONS (4)
  - Thrombosis [Unknown]
  - Abnormal clotting factor [Unknown]
  - Platelet count decreased [Recovered/Resolved]
  - Breast cancer in situ [Unknown]

NARRATIVE: CASE EVENT DATE: 2018
